FAERS Safety Report 5484176-3 (Version None)
Quarter: 2007Q4

REPORT INFORMATION
  Report Type: 
  Country: None (occurrence: None)
  Receive Date: 20071012
  Receipt Date: 20070719
  Transmission Date: 20080405
  Serious: No
  Sender: FDA-Public Use
  Company Number: US-ASTRAZENECA-2007UW17151

PATIENT
  Age: 54 Year
  Sex: Female

DRUGS (5)
  1. SYMBICORT [Suspect]
     Indication: RESPIRATION ABNORMAL
     Dosage: 160/4.5 UG
     Route: 055
  2. PREDNISONE [Concomitant]
  3. ALBUTEROL [Concomitant]
  4. ZESTORETIC [Concomitant]
  5. NEOMYCIN [Concomitant]

REACTIONS (5)
  - BLOOD PRESSURE ABNORMAL [None]
  - NERVOUSNESS [None]
  - PULSE ABNORMAL [None]
  - RASH [None]
  - VISION BLURRED [None]
